FAERS Safety Report 8567335-2 (Version None)
Quarter: 2012Q3

REPORT INFORMATION
  Report Type: 
  Country: None (occurrence: None)
  Receive Date: 20120803
  Receipt Date: 20120801
  Transmission Date: 20120928
  Serious: Yes (Other)
  Sender: FDA-Public Use
  Company Number: PHHY2012CN061664

PATIENT
  Age: 34 Year
  Sex: Female

DRUGS (4)
  1. LOTENSIN [Suspect]
     Dosage: 2 DF, A DAY
     Dates: start: 20120622
  2. LOTENSIN [Suspect]
     Indication: GESTATIONAL HYPERTENSION
     Dosage: 1 DF, A DAY
     Dates: start: 20120602
  3. LOTENSIN [Suspect]
     Dosage: 1.5 DF A DAY
     Dates: start: 20120710
  4. LOTENSIN [Suspect]
     Dosage: 1 DF A DAY
     Dates: start: 20120712, end: 20120714

REACTIONS (4)
  - HYPOTENSION [None]
  - CONDITION AGGRAVATED [None]
  - CONSTIPATION [None]
  - HEART RATE INCREASED [None]
